FAERS Safety Report 7932080-0 (Version None)
Quarter: 2011Q4

REPORT INFORMATION
  Report Type: 
  Country: None (occurrence: None)
  Receive Date: 20111121
  Receipt Date: 20111111
  Transmission Date: 20120403
  Serious: Yes (Other)
  Sender: FDA-Public Use
  Company Number: CN-ASTRAZENECA-2011SE68228

PATIENT
  Sex: Female

DRUGS (1)
  1. PROPOFOL [Suspect]
     Indication: ANAESTHESIA PROCEDURE
     Dosage: 2-2.5MG/KG
     Route: 042

REACTIONS (1)
  - ABORTION INDUCED COMPLICATED [None]
